FAERS Safety Report 10042997 (Version 1)
Quarter: 2014Q1

REPORT INFORMATION
  Report Type: Spontaneous
  Country: US (occurrence: US)
  Receive Date: 20140328
  Receipt Date: 20140328
  Transmission Date: 20141002
  Serious: Yes (Hospitalization)
  Sender: FDA-Public Use
  Company Number: US-ROCHE-1370974

PATIENT
  Age: 49 Year
  Sex: Male

DRUGS (5)
  1. XOLAIR [Suspect]
     Indication: PRODUCT USED FOR UNKNOWN INDICATION
     Route: 058
  2. ADVAIR [Concomitant]
  3. SINGULAIR [Concomitant]
  4. PROAIR (UNITED STATES) [Concomitant]
  5. NASONEX [Concomitant]

REACTIONS (13)
  - Asthma [Unknown]
  - Agitation [Unknown]
  - Dyspnoea [Unknown]
  - Cough [Unknown]
  - Chest pain [Unknown]
  - Middle insomnia [Unknown]
  - Chest discomfort [Unknown]
  - Wheezing [Unknown]
  - Claustrophobia [Unknown]
  - Headache [Unknown]
  - Hyperventilation [Unknown]
  - Mood swings [Unknown]
  - Dizziness [Unknown]
